FAERS Safety Report 19656335 (Version 1)
Quarter: 2021Q3

REPORT INFORMATION
  Report Type: Spontaneous
  Country: US (occurrence: US)
  Receive Date: 20210803
  Receipt Date: 20210803
  Transmission Date: 20211014
  Serious: Yes (Hospitalization)
  Sender: FDA-Public Use
  Company Number: None

PATIENT
  Age: 34 Year
  Sex: Female

DRUGS (12)
  1. ALBETEROL HFA [Concomitant]
  2. ASMANEX HFA [Concomitant]
     Active Substance: MOMETASONE FUROATE
  3. MONTELUKAST [Concomitant]
     Active Substance: MONTELUKAST SODIUM
  4. KURVELO [Concomitant]
     Active Substance: ETHINYL ESTRADIOL\LEVONORGESTREL
  5. MEDROXYPR AC [Concomitant]
  6. ENBREL [Suspect]
     Active Substance: ETANERCEPT
     Indication: RHEUMATOID ARTHRITIS
     Dosage: 1 PEN
     Route: 058
     Dates: start: 20171114
  7. NAPROXEN. [Concomitant]
     Active Substance: NAPROXEN
  8. SYNTHROID [Concomitant]
     Active Substance: LEVOTHYROXINE SODIUM
  9. XARELTO [Concomitant]
     Active Substance: RIVAROXABAN
  10. FOLIC ACID. [Concomitant]
     Active Substance: FOLIC ACID
  11. METFORMIN [Concomitant]
     Active Substance: METFORMIN HYDROCHLORIDE
  12. PHENTERMINE. [Concomitant]
     Active Substance: PHENTERMINE

REACTIONS (2)
  - Rotator cuff repair [None]
  - Therapy interrupted [None]

NARRATIVE: CASE EVENT DATE: 20210722
